FAERS Safety Report 21310555 (Version 14)
Quarter: 2024Q1

REPORT INFORMATION
  Report Type: Report from Study
  Country: US (occurrence: US)
  Receive Date: 20220909
  Receipt Date: 20240323
  Transmission Date: 20240410
  Serious: Yes (Other)
  Sender: FDA-Public Use
  Company Number: US-NOVARTISTESTPH-NVSC2022US198355

PATIENT
  Age: 22 Year
  Sex: Female

DRUGS (1)
  1. KESIMPTA [Suspect]
     Active Substance: OFATUMUMAB
     Indication: Relapsing multiple sclerosis
     Dosage: 20 MG, QMO
     Route: 058
     Dates: start: 20220826, end: 20231001

REACTIONS (10)
  - Hemiparesis [Unknown]
  - Condition aggravated [Unknown]
  - Pain in extremity [Unknown]
  - Migraine [Unknown]
  - Sunburn [Unknown]
  - Fatigue [Recovered/Resolved]
  - Stress [Unknown]
  - Headache [Unknown]
  - Influenza [Unknown]
  - Therapeutic response shortened [Unknown]

NARRATIVE: CASE EVENT DATE: 20220901
